FAERS Safety Report 7596539-0 (Version None)
Quarter: 2011Q3

REPORT INFORMATION
  Report Type: 
  Country: None (occurrence: None)
  Receive Date: 20110708
  Receipt Date: 20110625
  Transmission Date: 20111222
  Serious: Yes (Hospitalization, Other)
  Sender: FDA-Public Use
  Company Number: IN-PAR PHARMACEUTICAL, INC-2011SCPR003088

PATIENT

DRUGS (4)
  1. SERTRALINE HYDROCHLORIDE [Concomitant]
     Indication: DEPRESSION
     Dosage: 50 MG, UNKNOWN
     Route: 065
  2. METOPROLOL TARTRATE [Suspect]
     Indication: PRODUCT USED FOR UNKNOWN INDICATION
     Dosage: 20 DF, SINGLE
     Route: 048
  3. CLONOZEPAM [Concomitant]
     Indication: DEPRESSION
     Dosage: 1 MG, UNKNOWN
     Route: 065
  4. VERAPAMIL EXTENDED-RELEASE [Suspect]
     Indication: PRODUCT USED FOR UNKNOWN INDICATION
     Dosage: 25 DF, SINGLE
     Route: 048

REACTIONS (6)
  - INTENTIONAL OVERDOSE [None]
  - HYPOTENSION [None]
  - BRADYCARDIA [None]
  - SUICIDE ATTEMPT [None]
  - ATRIOVENTRICULAR BLOCK FIRST DEGREE [None]
  - OPTIC ISCHAEMIC NEUROPATHY [None]
